FAERS Safety Report 4362157-0 (Version None)
Quarter: 2004Q2

REPORT INFORMATION
  Report Type: 
  Country: None (occurrence: None)
  Receive Date: 20040518
  Receipt Date: 20040514
  Transmission Date: 20050107
  Serious: Yes (Other)
  Sender: FDA-Public Use
  Company Number: 163-20785-04040461

PATIENT
  Age: 48 Year
  Sex: Female

DRUGS (1)
  1. THALOMID [Suspect]
     Indication: DRUG USE FOR UNKNOWN INDICATION
     Dosage: ORAL
     Route: 048

REACTIONS (1)
  - NO ADVERSE EFFECT [None]
